FAERS Safety Report 23203467 (Version 1)
Quarter: 2023Q4

REPORT INFORMATION
  Report Type: Spontaneous
  Country: US (occurrence: US)
  Receive Date: 20231120
  Receipt Date: 20231120
  Transmission Date: 20240110
  Serious: No
  Sender: FDA-Public Use
  Company Number: US-drreddys-SPO/USA/23/0179573

PATIENT
  Age: 47 Year

DRUGS (1)
  1. ZENATANE [Suspect]
     Active Substance: ISOTRETINOIN
     Indication: Acne
     Dosage: RMA ISSUE DATE: 03 AUGUST 2023 12:55:20 PM, 06 SEPTEMBER 2023 02:56:22 PM

REACTIONS (1)
  - Treatment noncompliance [Unknown]
